FAERS Safety Report 25910325 (Version 2)
Quarter: 2025Q4

REPORT INFORMATION
  Report Type: Report from Study
  Country: US (occurrence: US)
  Receive Date: 20251012
  Receipt Date: 20251023
  Transmission Date: 20260117
  Serious: No
  Sender: ABBVIE
  Company Number: US-ABBVIE-6491881

PATIENT
  Age: 17 Year
  Sex: Female
  Weight: 70.306 kg

DRUGS (1)
  1. HUMIRA [Suspect]
     Active Substance: ADALIMUMAB
     Indication: Colitis ulcerative
     Dosage: FORM STRENGTH: 80 MILLIGRAM
     Route: 058
     Dates: start: 202504, end: 20250922

REACTIONS (12)
  - Colitis ulcerative [Recovering/Resolving]
  - Injection site bruising [Recovered/Resolved]
  - Injection site rash [Recovered/Resolved]
  - Injection site haemorrhage [Recovered/Resolved]
  - Haematochezia [Not Recovered/Not Resolved]
  - Pain [Recovering/Resolving]
  - Inflammation [Recovering/Resolving]
  - Colitis ulcerative [Recovered/Resolved]
  - Product quality issue [Not Recovered/Not Resolved]
  - Injection site swelling [Recovered/Resolved]
  - Device use error [Not Recovered/Not Resolved]
  - Injection site haemorrhage [Recovered/Resolved]

NARRATIVE: CASE EVENT DATE: 20250101
